FAERS Safety Report 22525772 (Version 2)
Quarter: 2023Q2

REPORT INFORMATION
  Report Type: Spontaneous
  Country: US (occurrence: US)
  Receive Date: 20230606
  Receipt Date: 20230616
  Transmission Date: 20230722
  Serious: Yes (Life-Threatening, Hospitalization, Other)
  Sender: FDA-Public Use
  Company Number: US-MLMSERVICE-20230522-4296997-1

PATIENT
  Age: 44 Year
  Sex: Male

DRUGS (1)
  1. TYLENOL [Suspect]
     Active Substance: ACETAMINOPHEN
     Indication: Product used for unknown indication
     Dosage: 40 TABLETS OVER THE LAST 1-2 DAYS
     Route: 048

REACTIONS (2)
  - Acute hepatic failure [Recovering/Resolving]
  - Overdose [Unknown]
